FAERS Safety Report 8110346-1 (Version None)
Quarter: 2012Q1

REPORT INFORMATION
  Report Type: 
  Country: None (occurrence: None)
  Receive Date: 20120202
  Receipt Date: 20120126
  Transmission Date: 20120608
  Serious: Yes (Hospitalization, Other)
  Sender: FDA-Public Use
  Company Number: GXBR2012US000587

PATIENT
  Sex: Female
  Weight: 65.306 kg

DRUGS (6)
  1. COLCHICINE [Suspect]
     Indication: OEDEMA PERIPHERAL
     Dosage: 0.6 MG, QD
     Route: 048
     Dates: start: 20110801, end: 20110901
  2. LASIX [Concomitant]
     Dosage: UNK MG, UNK
  3. SYNTHROID [Concomitant]
     Indication: HYPOTHYROIDISM
     Dosage: 25 UG, QD
     Route: 048
  4. METOPROLOL [Concomitant]
     Indication: CARDIOMYOPATHY
     Dosage: 50 MG, QD
     Route: 048
  5. INDOMETHACIN [Suspect]
     Indication: OEDEMA PERIPHERAL
     Dosage: 1 DF, QD
     Route: 048
     Dates: start: 20110801, end: 20110901
  6. CLARITHROMYCIN [Suspect]
     Indication: SKIN ULCER
     Dosage: 500 MG, BID
     Route: 048
     Dates: start: 20111206, end: 20111214

REACTIONS (17)
  - COMPLEX PARTIAL SEIZURES [None]
  - CONVULSION [None]
  - MENTAL STATUS CHANGES [None]
  - DRUG INTERACTION [None]
  - MYOCARDIAL INFARCTION [None]
  - RESPIRATORY FAILURE [None]
  - FALL [None]
  - DELIRIUM [None]
  - CEREBRAL CYST [None]
  - LOSS OF CONSCIOUSNESS [None]
  - HYDROCEPHALUS [None]
  - AMNESIA [None]
  - AGITATION [None]
  - FOOT FRACTURE [None]
  - PSYCHOTIC DISORDER [None]
  - URINARY TRACT INFECTION BACTERIAL [None]
  - SPEECH DISORDER [None]
